FAERS Safety Report 4877950-5 (Version None)
Quarter: 2005Q4

REPORT INFORMATION
  Report Type: 
  Country: None (occurrence: None)
  Receive Date: 20051206
  Receipt Date: 20050830
  Transmission Date: 20060501
  Serious: No
  Sender: FDA-Public Use
  Company Number: USA0508106736

PATIENT
  Age: 65 Year
  Sex: Female

DRUGS (10)
  1. CYMBALTA [Suspect]
     Indication: CHRONIC FATIGUE SYNDROME
     Dosage: 60 MG
     Dates: start: 20041201, end: 20050801
  2. ESTROGENS ESTERIFIED W/METHYLTESTOSTERONE [Concomitant]
  3. SYNTHROID [Concomitant]
  4. ADDERALL 10 [Concomitant]
  5. ALLEGRA [Concomitant]
  6. DURAGESIC-100 [Concomitant]
  7. ACETAMINOPHEN AND HYDROCODONE BITARTRATE [Concomitant]
  8. ZELNORM [Concomitant]
  9. FLUOXETINE [Concomitant]
  10. EFFEXOR [Concomitant]

REACTIONS (6)
  - DEPRESSION [None]
  - FEELING ABNORMAL [None]
  - HOT FLUSH [None]
  - HYPERHIDROSIS [None]
  - INFLUENZA LIKE ILLNESS [None]
  - WEIGHT INCREASED [None]
